FAERS Safety Report 5074192-8 (Version None)
Quarter: 2006Q3

REPORT INFORMATION
  Report Type: 
  Country: None (occurrence: None)
  Receive Date: 20060803
  Receipt Date: 20060726
  Transmission Date: 20061208
  Serious: Yes (Hospitalization)
  Sender: FDA-Public Use
  Company Number: 2006-04141

PATIENT
  Age: 57 Year
  Sex: Male

DRUGS (4)
  1. HYDROCHLOROTHIAZIDE [Suspect]
     Indication: INTENTIONAL OVERDOSE
     Dosage: ORAL
     Route: 048
     Dates: start: 20060101, end: 20060101
  2. OXCARBAZEPINE [Suspect]
     Indication: INTENTIONAL OVERDOSE
     Dosage: 42 G, SINGLE, ORAL
     Route: 048
     Dates: start: 20060101, end: 20060101
  3. BENAZEPRIL(BENAZEPRIL) [Suspect]
     Indication: INTENTIONAL OVERDOSE
     Dates: start: 20060101, end: 20060101
  4. ETHANOL(ETHANOL) [Suspect]
     Indication: INTENTIONAL OVERDOSE
     Dosage: GLASSES OF WINE, ORAL
     Route: 048
     Dates: start: 20060101, end: 20060101

REACTIONS (4)
  - ALCOHOL USE [None]
  - HAEMODIALYSIS [None]
  - LOSS OF CONSCIOUSNESS [None]
  - MULTIPLE DRUG OVERDOSE INTENTIONAL [None]
